FAERS Safety Report 15469285 (Version 1)
Quarter: 2018Q4

REPORT INFORMATION
  Report Type: Spontaneous
  Country: FR (occurrence: FR)
  Receive Date: 20181005
  Receipt Date: 20181005
  Transmission Date: 20190205
  Serious: Yes (Hospitalization)
  Sender: FDA-Public Use
  Company Number: FR-MYLANLABS-2018M1072941

PATIENT
  Age: 70 Year
  Sex: Male
  Weight: 112 kg

DRUGS (4)
  1. REMIFENTANIL MYLAN [Suspect]
     Active Substance: REMIFENTANIL
     Indication: GENERAL ANAESTHESIA
     Dosage: 375 ?G, TOTAL
     Route: 041
     Dates: start: 20180326, end: 20180326
  2. ATRACURIUM HOSPIRA [Suspect]
     Active Substance: ATRACURIUM BESYLATE
     Indication: GENERAL ANAESTHESIA
     Dosage: 50 MG, TOTAL
     Route: 041
     Dates: start: 20180326, end: 20180326
  3. PROPOFOL PANPHARMA [Suspect]
     Active Substance: PROPOFOL
     Indication: GENERAL ANAESTHESIA
     Dosage: 450 MG, TOTAL
     Route: 041
     Dates: start: 20180326, end: 20180326
  4. LIDOCAINE AGUETTANT [Suspect]
     Active Substance: LIDOCAINE
     Indication: GENERAL ANAESTHESIA
     Dosage: 100 MG, TOTAL
     Route: 041
     Dates: start: 20180326, end: 20180326

REACTIONS (1)
  - Anaphylactic shock [Recovered/Resolved]

NARRATIVE: CASE EVENT DATE: 20180326
